FAERS Safety Report 11367516 (Version 1)
Quarter: 2015Q3

REPORT INFORMATION
  Report Type: Spontaneous
  Country: US (occurrence: US)
  Receive Date: 20150811
  Receipt Date: 20150811
  Transmission Date: 20151125
  Serious: No
  Sender: FDA-Public Use
  Company Number: US-ELI_LILLY_AND_COMPANY-US201204006485

PATIENT
  Sex: Male
  Weight: 68 kg

DRUGS (2)
  1. AXIRON [Suspect]
     Active Substance: TESTOSTERONE
     Indication: BLOOD TESTOSTERONE DECREASED
     Dosage: 30 MG, UNKNOWN
  2. AXIRON [Suspect]
     Active Substance: TESTOSTERONE
     Dosage: 1/4 OF A PUMP

REACTIONS (12)
  - Pain in extremity [Recovered/Resolved]
  - Nausea [Unknown]
  - Asthenopia [Unknown]
  - Pollakiuria [Unknown]
  - Hypertension [Unknown]
  - Confusional state [Unknown]
  - Dyspnoea [Unknown]
  - Visual impairment [Unknown]
  - Diarrhoea [Unknown]
  - Palpitations [Unknown]
  - Thinking abnormal [Unknown]
  - Intentional product misuse [Unknown]
